FAERS Safety Report 7131980-1 (Version None)
Quarter: 2010Q4

REPORT INFORMATION
  Report Type: 
  Country: None (occurrence: None)
  Receive Date: 20101124
  Receipt Date: 20101124
  Transmission Date: 20110411
  Serious: Yes (Other)
  Sender: FDA-Public Use
  Company Number: None

PATIENT
  Age: 52 Year
  Sex: Female
  Weight: 52.1637 kg

DRUGS (2)
  1. KENALOG [Suspect]
     Indication: TENOSYNOVITIS
     Dosage: 40.55CC 1 INJECTION WRIST
     Dates: start: 20100914, end: 20100914
  2. KENALOG [Suspect]
     Dosage: 40.55CC 1 INJECTON THUMB
     Dates: start: 20100914, end: 20100914

REACTIONS (6)
  - IMPAIRED DRIVING ABILITY [None]
  - IMPAIRED SELF-CARE [None]
  - MUSCLE ATROPHY [None]
  - SENSORY LOSS [None]
  - SKIN ATROPHY [None]
  - SKIN EXFOLIATION [None]
